APPROVED DRUG PRODUCT: DASATINIB
Active Ingredient: DASATINIB
Strength: 20MG
Dosage Form/Route: TABLET;ORAL
Application: A214350 | Product #001 | TE Code: AB
Applicant: LUPIN INC
Approved: Aug 25, 2025 | RLD: No | RS: No | Type: RX